FAERS Safety Report 15887101 (Version 11)
Quarter: 2020Q2

REPORT INFORMATION
  Report Type: Report from Study
  Country: BE (occurrence: BE)
  Receive Date: 20190130
  Receipt Date: 20200528
  Transmission Date: 20200713
  Serious: Yes (Hospitalization)
  Sender: FDA-Public Use
  Company Number: BE-ROCHE-2251146

PATIENT
  Age: 78 Year
  Sex: Male
  Weight: 86 kg

DRUGS (73)
  1. ZYLORIC [Concomitant]
     Active Substance: ALLOPURINOL
     Indication: PROPHYLAXIS
     Route: 065
     Dates: start: 201410, end: 20181220
  2. OMEPRAZOLE. [Concomitant]
     Active Substance: OMEPRAZOLE
     Indication: PROPHYLAXIS AGAINST GASTROINTESTINAL ULCER
     Route: 065
     Dates: start: 20181126
  3. SOLU-MEDROL [Concomitant]
     Active Substance: METHYLPREDNISOLONE SODIUM SUCCINATE
     Route: 042
     Dates: start: 20190723, end: 20190723
  4. PARACETAMOL [Concomitant]
     Active Substance: ACETAMINOPHEN
     Route: 065
     Dates: start: 20190103, end: 20190103
  5. PARACETAMOL [Concomitant]
     Active Substance: ACETAMINOPHEN
     Route: 065
     Dates: start: 20190820, end: 20190820
  6. CICALFATE [Concomitant]
     Indication: DRY SKIN
     Route: 065
     Dates: start: 20190214, end: 20190220
  7. TRAMADOL. [Concomitant]
     Active Substance: TRAMADOL
     Indication: PAIN
     Route: 065
     Dates: start: 20181228, end: 20181228
  8. FLUCONAZOLE. [Concomitant]
     Active Substance: FLUCONAZOLE
     Indication: ANTIFUNGAL PROPHYLAXIS
     Route: 065
     Dates: start: 20181220
  9. TEMESTA [LORAZEPAM] [Concomitant]
     Active Substance: LORAZEPAM
     Indication: INSOMNIA
     Route: 065
     Dates: start: 20190412, end: 20190412
  10. DAFALGAN [Concomitant]
     Active Substance: ACETAMINOPHEN
     Route: 048
     Dates: start: 20181220, end: 20181220
  11. INSULIN [Concomitant]
     Active Substance: INSULIN NOS
     Indication: HYPERGLYCAEMIA
     Route: 065
     Dates: start: 20190124, end: 20190124
  12. PROMAGNOR [Concomitant]
     Active Substance: MAGNESIUM
     Indication: HYPOMAGNESAEMIA
     Route: 065
     Dates: start: 20190818, end: 20190821
  13. TAZOCIN [Concomitant]
     Active Substance: PIPERACILLIN SODIUM\TAZOBACTAM SODIUM
     Indication: PNEUMONIA
     Route: 065
     Dates: start: 20191105, end: 20191118
  14. DIFLUCAN [Concomitant]
     Active Substance: FLUCONAZOLE
     Indication: ANTIFUNGAL PROPHYLAXIS
     Route: 065
     Dates: start: 20181126, end: 20181220
  15. PRIMPERAN [Concomitant]
     Active Substance: METOCLOPRAMIDE HYDROCHLORIDE
     Indication: NAUSEA
     Route: 065
     Dates: start: 20171106, end: 20181220
  16. ATROVENT [Concomitant]
     Active Substance: IPRATROPIUM BROMIDE
     Indication: CYTOKINE RELEASE SYNDROME
     Route: 065
     Dates: start: 20181229, end: 20190111
  17. IMODIUM [Concomitant]
     Active Substance: LOPERAMIDE HYDROCHLORIDE
     Indication: DIARRHOEA
     Route: 065
     Dates: start: 20181229, end: 20181229
  18. NANOGAM [Concomitant]
     Active Substance: HUMAN IMMUNOGLOBULIN G
     Indication: HYPOGAMMAGLOBULINAEMIA
     Route: 065
     Dates: start: 20190820, end: 20190820
  19. TAVEGYL [Concomitant]
     Active Substance: CLEMASTINE FUMARATE
     Route: 042
     Dates: start: 20181227, end: 20181227
  20. ALLOPURINOL. [Concomitant]
     Active Substance: ALLOPURINOL
     Indication: PROPHYLAXIS
     Route: 065
     Dates: start: 20181221
  21. DENTIO [Concomitant]
     Dosage: DENTIO MOUTH WASH
     Route: 065
     Dates: start: 20181221
  22. INSULIN [Concomitant]
     Active Substance: INSULIN NOS
     Indication: HYPOMAGNESAEMIA
     Route: 065
     Dates: start: 20190129, end: 20190129
  23. ATEZOLIZUMAB. [Suspect]
     Active Substance: ATEZOLIZUMAB
     Indication: B-CELL LYMPHOMA
     Dosage: DOSE OF MOST RECENT ATEZOLIZUMAB ADMINISTERED PRIOR TO AE ONSET: 1200 MG?DATE OF MOST RECENT DOSE OF
     Route: 042
     Dates: start: 20190117
  24. METFORMIN [Concomitant]
     Active Substance: METFORMIN HYDROCHLORIDE
     Indication: STEROID DIABETES
     Route: 065
     Dates: start: 20181126
  25. LASIX [Concomitant]
     Active Substance: FUROSEMIDE
     Route: 065
     Dates: start: 20190215, end: 20190215
  26. TAVEGYL [Concomitant]
     Active Substance: CLEMASTINE FUMARATE
     Route: 042
     Dates: start: 20190814, end: 20190814
  27. PARACETAMOL [Concomitant]
     Active Substance: ACETAMINOPHEN
     Route: 065
     Dates: start: 20190106, end: 20190106
  28. ACTOSOLV [Concomitant]
     Route: 065
     Dates: start: 20190304, end: 20190304
  29. MEDROL [Concomitant]
     Active Substance: METHYLPREDNISOLONE
     Indication: PNEUMONIA
     Route: 065
     Dates: start: 201811, end: 20190213
  30. MOVICOL [Concomitant]
     Active Substance: POLYETHYLENE GLYCOL 3350\POTASSIUM CHLORIDE\SODIUM BICARBONATE\SODIUM CHLORIDE
     Route: 065
     Dates: start: 20190107, end: 20190107
  31. OBINUTUZUMAB. [Suspect]
     Active Substance: OBINUTUZUMAB
     Indication: B-CELL LYMPHOMA
     Dosage: MOST RECENT DOSE AT 13:52
     Route: 042
     Dates: start: 20181220, end: 20181220
  32. BACTRIM [Concomitant]
     Active Substance: SULFAMETHOXAZOLE\TRIMETHOPRIM
     Indication: ANTIFUNGAL PROPHYLAXIS
     Route: 065
     Dates: start: 20160331
  33. LASIX [Concomitant]
     Active Substance: FUROSEMIDE
     Route: 065
     Dates: start: 20181229, end: 20181230
  34. PARACETAMOL [Concomitant]
     Active Substance: ACETAMINOPHEN
     Indication: CHILLS
     Route: 065
     Dates: start: 20181228, end: 20181229
  35. PARACETAMOL [Concomitant]
     Active Substance: ACETAMINOPHEN
     Route: 048
     Dates: start: 20190723, end: 20190723
  36. BURINEX [Concomitant]
     Active Substance: BUMETANIDE
     Indication: FLUID RETENTION
     Route: 065
     Dates: start: 20181231, end: 20181231
  37. LITICAN [ALIZAPRIDE HYDROCHLORIDE] [Concomitant]
     Indication: NAUSEA
     Route: 065
     Dates: start: 20181228, end: 20181228
  38. DENTIO [Concomitant]
     Route: 065
     Dates: start: 20181227, end: 20190112
  39. DUOVENT [Concomitant]
     Active Substance: FENOTEROL HYDROBROMIDE
     Indication: DYSPNOEA
     Route: 065
     Dates: start: 201602
  40. MOVICOL [Concomitant]
     Active Substance: POLYETHYLENE GLYCOL 3350\POTASSIUM CHLORIDE\SODIUM BICARBONATE\SODIUM CHLORIDE
     Route: 065
     Dates: start: 20190105, end: 20190105
  41. AUGMENTIN [Concomitant]
     Active Substance: AMOXICILLIN\CLAVULANATE POTASSIUM
     Indication: CYTOKINE RELEASE SYNDROME
     Route: 065
     Dates: start: 20181229, end: 20190102
  42. LYRICA [Concomitant]
     Active Substance: PREGABALIN
     Indication: NEUROPATHY PERIPHERAL
     Route: 065
     Dates: start: 20180524
  43. SOLU-MEDROL [Concomitant]
     Active Substance: METHYLPREDNISOLONE SODIUM SUCCINATE
     Route: 042
     Dates: start: 20181227, end: 20181227
  44. TAVEGYL [Concomitant]
     Active Substance: CLEMASTINE FUMARATE
     Indication: PREMEDICATION
     Route: 042
     Dates: start: 20190117, end: 20190117
  45. CICALFATE [Concomitant]
     Indication: SKIN IRRITATION
     Route: 065
     Dates: start: 20190107, end: 20190111
  46. DETRUSITOL [Concomitant]
     Active Substance: TOLTERODINE TARTRATE
     Indication: URINARY INCONTINENCE
     Route: 065
     Dates: start: 20181228
  47. DUOVENT [Concomitant]
     Active Substance: FENOTEROL HYDROBROMIDE
     Indication: INFUSION RELATED REACTION
     Route: 065
     Dates: start: 20181220, end: 20181220
  48. ZOVIRAX [Concomitant]
     Active Substance: ACYCLOVIR
     Dosage: PROPHYLAXIS H ZOSTER INFECTION
     Route: 065
     Dates: start: 20190211, end: 20190211
  49. AUGMENTIN [Concomitant]
     Active Substance: AMOXICILLIN\CLAVULANATE POTASSIUM
     Route: 065
     Dates: start: 20191103, end: 20191105
  50. CEDOCARD [Concomitant]
     Active Substance: ISOSORBIDE DINITRATE
     Indication: PNEUMONIA
     Route: 065
     Dates: start: 20191103, end: 20191103
  51. RO7082859 (CD20/C3 T-CELL BISPECIFIC MAB) [Suspect]
     Active Substance: GLOFITAMAB
     Indication: B-CELL LYMPHOMA
     Dosage: DOSE OF MOST RECENT RO7082859 ADMINISTERED PRIOR TO AE ONSET: 1800 UG ?DATE OF MOST RECENT DOSE OF R
     Route: 042
     Dates: start: 20181227
  52. TOCILIZUMAB. [Suspect]
     Active Substance: TOCILIZUMAB
     Indication: B-CELL LYMPHOMA
     Dosage: DATE OF MOST RECENT DOSE OF TOCILIZUMAB PRIOR TO ADVERSE EVENT ONSET: 12/APR/2019 AT 1:55 AM (DOSE:
     Route: 042
     Dates: start: 20190412
  53. LASIX [Concomitant]
     Active Substance: FUROSEMIDE
     Indication: FLUID RETENTION
     Route: 065
     Dates: start: 20190108, end: 20190108
  54. SOLU-MEDROL [Concomitant]
     Active Substance: METHYLPREDNISOLONE SODIUM SUCCINATE
     Indication: PREMEDICATION
     Route: 042
     Dates: start: 20190117, end: 20190117
  55. SOLU-MEDROL [Concomitant]
     Active Substance: METHYLPREDNISOLONE SODIUM SUCCINATE
     Route: 042
     Dates: start: 20181220, end: 20181220
  56. SOLU-MEDROL [Concomitant]
     Active Substance: METHYLPREDNISOLONE SODIUM SUCCINATE
     Route: 042
     Dates: start: 20190814, end: 20190814
  57. TAVEGYL [Concomitant]
     Active Substance: CLEMASTINE FUMARATE
     Route: 042
     Dates: start: 20190723, end: 20190723
  58. PARACETAMOL [Concomitant]
     Active Substance: ACETAMINOPHEN
     Indication: PREMEDICATION
     Route: 048
     Dates: start: 20190117, end: 20190117
  59. PARACETAMOL [Concomitant]
     Active Substance: ACETAMINOPHEN
     Route: 042
     Dates: start: 20190814, end: 20190814
  60. DENTIO [Concomitant]
     Route: 065
     Dates: start: 20190321
  61. ACTOSOLV [Concomitant]
     Route: 065
     Dates: start: 20181227, end: 20181227
  62. CITANEST [PRILOCAINE HYDROCHLORIDE] [Concomitant]
     Route: 065
     Dates: start: 20181210, end: 20181210
  63. PRIVIGEN [Concomitant]
     Active Substance: HUMAN IMMUNOGLOBULIN G
     Indication: HYPOGAMMAGLOBULINAEMIA
     Route: 065
     Dates: start: 20190917, end: 20190917
  64. LENALIDOMIDE [Concomitant]
     Active Substance: LENALIDOMIDE
     Indication: NEOPLASM MALIGNANT
     Route: 065
     Dates: start: 20190910, end: 20190924
  65. TAVEGYL [Concomitant]
     Active Substance: CLEMASTINE FUMARATE
     Route: 042
     Dates: start: 20181220, end: 20181220
  66. PARACETAMOL [Concomitant]
     Active Substance: ACETAMINOPHEN
     Indication: CYTOKINE RELEASE SYNDROME
     Route: 048
     Dates: start: 20181227, end: 20181227
  67. PARACETAMOL [Concomitant]
     Active Substance: ACETAMINOPHEN
     Indication: BRONCHITIS
     Route: 065
     Dates: start: 20181220, end: 20181220
  68. PARACETAMOL [Concomitant]
     Active Substance: ACETAMINOPHEN
     Route: 065
     Dates: start: 20190917, end: 20190917
  69. ACICLOVIR [Concomitant]
     Active Substance: ACYCLOVIR
     Route: 065
     Dates: start: 20181221
  70. DENTIO [Concomitant]
     Route: 065
     Dates: start: 20190214, end: 20190214
  71. MOVICOL [Concomitant]
     Active Substance: POLYETHYLENE GLYCOL 3350\POTASSIUM CHLORIDE\SODIUM BICARBONATE\SODIUM CHLORIDE
     Indication: CONSTIPATION
     Route: 065
     Dates: start: 20190131, end: 20190131
  72. INDERAL [Concomitant]
     Active Substance: PROPRANOLOL HYDROCHLORIDE
     Indication: HYPERTENSION
     Route: 065
     Dates: start: 20190218
  73. ELOCOM [Concomitant]
     Active Substance: MOMETASONE FUROATE
     Indication: ECZEMA
     Route: 065
     Dates: start: 20190910

REACTIONS (3)
  - Myopathy [Not Recovered/Not Resolved]
  - Myopathy [Recovered/Resolved]
  - Myopathy [Recovered/Resolved with Sequelae]

NARRATIVE: CASE EVENT DATE: 20190118
